FAERS Safety Report 21731467 (Version 1)
Quarter: 2022Q4

REPORT INFORMATION
  Report Type: Report from Study
  Country: IT (occurrence: IT)
  Receive Date: 20221215
  Receipt Date: 20221215
  Transmission Date: 20230113
  Serious: Yes (Other)
  Sender: FDA-Public Use
  Company Number: None

PATIENT
  Age: 81 Year
  Sex: Female

DRUGS (9)
  1. RAMIPRIL [Suspect]
     Active Substance: RAMIPRIL
     Indication: Product used for unknown indication
     Dosage: DOSAGE: 2.5, UNIT OF MEASURE: MILLIGRAMS, UNIT DOSE : 25 MG, FREQUENCY TIME : 24 HOURS
  2. FUROSEMIDE [Suspect]
     Active Substance: FUROSEMIDE
     Indication: Product used for unknown indication
     Dosage: DOSAGE: 25, UNIT OF MEASURE: MILLIGRAMS, FREQUENCY TIME : 12 HOURS
  3. CANRENOATE POTASSIUM [Suspect]
     Active Substance: CANRENOATE POTASSIUM
     Indication: Product used for unknown indication
     Dosage: UNIT DOSE: 25 MG , FREQUENCY TIME : 6 HOURS
  4. PANTOPRAZOLE [Concomitant]
     Active Substance: PANTOPRAZOLE
     Indication: Product used for unknown indication
     Dosage: DOSAGE: 20, UNIT OF MEASURE: MILLIGRAMS, ROUTE OF ADMINISTRATION: ORAL, FREQUENCY TIME : 12 HOURS
     Route: 048
  5. ATORVASTATIN [Concomitant]
     Active Substance: ATORVASTATIN
     Indication: Product used for unknown indication
     Dosage: DOSAGE: 40, UNIT OF MEASURE: MILLIGRAMS, ROUTE OF ADMINISTRATION: ORAL, FREQUENCY TIME : 24 HOURS
     Route: 048
  6. ALLOPURINOL [Concomitant]
     Active Substance: ALLOPURINOL
     Indication: Product used for unknown indication
     Dosage: DOSAGE: 300, UNIT OF MEASURE: MILLIGRAMS, ROUTE OF ADMINISTRATION: ORAL, UNIT DOSE: 150 MG , FREQUEN
     Route: 048
  7. METFORMIN [Concomitant]
     Active Substance: METFORMIN HYDROCHLORIDE
     Indication: Type 2 diabetes mellitus
     Dosage: DOSAGE: 1000, UNIT OF MEASURE: MILLIGRAMS, ROUTE OF ADMINISTRATION: ORAL, FREQUENCY TIME : 8 HOURS
     Route: 048
  8. CARVEDILOL [Concomitant]
     Active Substance: CARVEDILOL
     Indication: Product used for unknown indication
     Dosage: DOSAGE: 6.25, UNIT OF MEASURE: MILLIGRAMS, ROUTE OF ADMINISTRATION: ORAL, FREQUENCY TIME : 12 HOURS
     Route: 048
  9. ASPIRIN [Concomitant]
     Active Substance: ASPIRIN
     Indication: Product used for unknown indication
     Dosage: ROUTE OF ADMINISTRATION: ORAL
     Route: 048

REACTIONS (2)
  - Diabetic metabolic decompensation [Recovered/Resolved]
  - Hyperkalaemia [Recovered/Resolved]

NARRATIVE: CASE EVENT DATE: 20220622
